FAERS Safety Report 12996094 (Version 1)
Quarter: 2016Q4

REPORT INFORMATION
  Report Type: Spontaneous
  Country: KE (occurrence: KE)
  Receive Date: 20161202
  Receipt Date: 20161202
  Transmission Date: 20170207
  Serious: Yes (Other)
  Sender: FDA-Public Use
  Company Number: KE-IMPAX LABORATORIES, INC-2016-IPXL-02258

PATIENT
  Age: 7 Year
  Sex: Male

DRUGS (1)
  1. ALBENZA [Suspect]
     Active Substance: ALBENDAZOLE
     Indication: THERAPEUTIC PROCEDURE
     Dosage: SINGLE, ORAL SUSPENSION
     Route: 048
     Dates: start: 20161118, end: 20161118

REACTIONS (3)
  - Pyrexia [Recovered/Resolved]
  - Headache [Recovered/Resolved]
  - Seizure [Recovered/Resolved]

NARRATIVE: CASE EVENT DATE: 20161118
